FAERS Safety Report 8248951-4 (Version None)
Quarter: 2012Q2

REPORT INFORMATION
  Report Type: 
  Country: None (occurrence: None)
  Receive Date: 20120402
  Receipt Date: 20120322
  Transmission Date: 20120825
  Serious: Yes (Hospitalization, Disabling)
  Sender: FDA-Public Use
  Company Number: JP-BRISTOL-MYERS SQUIBB COMPANY-16365009

PATIENT
  Age: 79 Year
  Sex: Male
  Weight: 62 kg

DRUGS (5)
  1. POLARAMINE [Concomitant]
     Indication: PREMEDICATION
     Route: 042
     Dates: start: 20120117, end: 20120117
  2. DECADRON [Concomitant]
     Indication: PREMEDICATION
     Route: 042
     Dates: start: 20120117, end: 20120117
  3. ERBITUX [Suspect]
     Indication: COLORECTAL CANCER
     Route: 042
     Dates: start: 20120117, end: 20120117
  4. AMLODIPINE [Concomitant]
     Indication: HYPERTENSION
     Dosage: TABLET
     Route: 048
  5. ZOFRAN [Concomitant]
     Indication: PREMEDICATION
     Route: 042
     Dates: start: 20120117, end: 20120117

REACTIONS (2)
  - CEREBRAL HAEMORRHAGE [None]
  - INFUSION RELATED REACTION [None]
